FAERS Safety Report 5238566-4 (Version None)
Quarter: 2007Q1

REPORT INFORMATION
  Report Type: 
  Country: None (occurrence: None)
  Receive Date: 20070215
  Receipt Date: 20070202
  Transmission Date: 20070707
  Serious: Yes (Other)
  Sender: FDA-Public Use
  Company Number: KR-PFIZER INC-2007010112

PATIENT
  Sex: Female

DRUGS (4)
  1. ZELDOX (CAPSULES) [Suspect]
     Indication: SCHIZOPHRENIA, PARANOID TYPE
     Route: 048
     Dates: start: 20060517, end: 20060529
  2. ALPRAZOLAM [Concomitant]
     Indication: ANXIETY
     Dates: start: 20060517, end: 20060523
  3. VALIUM [Concomitant]
     Indication: ANXIETY
     Dates: start: 20060523, end: 20060615
  4. BROMOCRIPTINE MESYLATE [Concomitant]

REACTIONS (2)
  - DRUG INEFFECTIVE [None]
  - HYPOTENSION [None]
